FAERS Safety Report 8270684-9 (Version None)
Quarter: 2012Q2

REPORT INFORMATION
  Report Type: 
  Country: None (occurrence: None)
  Receive Date: 20120406
  Receipt Date: 20120327
  Transmission Date: 20120825
  Serious: Yes (Other)
  Sender: FDA-Public Use
  Company Number: 2012000068

PATIENT
  Age: 64 Year
  Sex: Male

DRUGS (15)
  1. SAXAGLIPTIN (SAXAGLIPTIN) [Suspect]
     Indication: TYPE 2 DIABETES MELLITUS
     Dosage: 1 DF,
     Dates: start: 20110127
  2. PLACEBO [Suspect]
     Dates: start: 20110127
  3. SPIRIVA [Concomitant]
  4. EZETIMIBE [Concomitant]
  5. METAMUCIL-2 [Concomitant]
  6. SERETIDE (FLUTICASONE PROPIONATE, SALMETEROL XINAFOATE) [Concomitant]
  7. LIPASE (LIPASE) [Concomitant]
  8. TAMSULOSIN HCL [Concomitant]
  9. ACEON [Suspect]
  10. NOVOLOG [Suspect]
     Indication: TYPE 2 DIABETES MELLITUS
     Dosage: 64 IU,
  11. LEVEMIR [Suspect]
     Indication: TYPE 2 DIABETES MELLITUS
     Dosage: 30 IU,
  12. FLUTICASONE PROPIONATE [Concomitant]
  13. VENTOLIN [Concomitant]
  14. AMYLASE (AMYLASE) [Concomitant]
  15. NEXIUM [Concomitant]

REACTIONS (4)
  - CONSTIPATION [None]
  - PANCREATIC CALCIFICATION [None]
  - PANCREATITIS CHRONIC [None]
  - CONDITION AGGRAVATED [None]
